FAERS Safety Report 9001216 (Version 1)
Quarter: 2013Q1

REPORT INFORMATION
  Report Type: Spontaneous
  Country: CA (occurrence: CA)
  Receive Date: 20130107
  Receipt Date: 20130107
  Transmission Date: 20140127
  Serious: Yes (Other)
  Sender: FDA-Public Use
  Company Number: CA-GENZYME-FABR-1002944

PATIENT
  Sex: Female

DRUGS (2)
  1. FABRAZYME [Suspect]
     Indication: FABRY^S DISEASE
     Dosage: 70 MG, Q2W
     Route: 042
  2. VITAMIN D [Concomitant]
     Indication: PRODUCT USED FOR UNKNOWN INDICATION
     Route: 065

REACTIONS (1)
  - Breast cancer [Not Recovered/Not Resolved]
